FAERS Safety Report 9044928 (Version 1)
Quarter: 2013Q1

REPORT INFORMATION
  Report Type: Spontaneous
  Country: FR (occurrence: FR)
  Receive Date: 20130130
  Receipt Date: 20130130
  Transmission Date: 20140127
  Serious: Yes (Hospitalization)
  Sender: FDA-Public Use
  Company Number: FR-GLAXOSMITHKLINE-B0861483A

PATIENT
  Age: 86 None
  Sex: Female

DRUGS (11)
  1. DEROXAT [Suspect]
     Indication: DEPRESSION
     Route: 048
     Dates: start: 20111128, end: 20120103
  2. SERETIDE DISKUS [Concomitant]
     Indication: CHRONIC OBSTRUCTIVE PULMONARY DISEASE
     Route: 055
  3. LERCAN [Concomitant]
     Indication: HYPERTENSION
     Dosage: 20MG PER DAY
     Route: 048
  4. ACTONEL [Concomitant]
     Indication: OSTEOPOROSIS
     Dosage: 35MG UNKNOWN
     Route: 048
  5. INEXIUM [Concomitant]
     Indication: GASTROOESOPHAGEAL REFLUX DISEASE
     Dosage: 20MG PER DAY
     Route: 048
  6. APROVEL [Concomitant]
     Indication: HYPERTENSION
     Dosage: 300MG PER DAY
     Route: 048
  7. KALEORID LP [Concomitant]
     Indication: HYPOKALAEMIA
     Dosage: 600MG PER DAY
     Route: 048
  8. CACIT VITAMINE D3 [Concomitant]
     Route: 048
  9. PRADAXA [Concomitant]
     Indication: TYPE 2 DIABETES MELLITUS
     Dosage: 75MG TWICE PER DAY
     Route: 048
     Dates: start: 20111128
  10. DEBRIDAT [Concomitant]
     Route: 048
  11. DOLIPRANE [Concomitant]
     Indication: PAIN
     Route: 048

REACTIONS (7)
  - Asthenia [Recovering/Resolving]
  - Decreased appetite [Recovering/Resolving]
  - Hyponatraemia [Recovering/Resolving]
  - Gait disturbance [Recovering/Resolving]
  - General physical health deterioration [Recovering/Resolving]
  - Dry mouth [Recovering/Resolving]
  - Inappropriate antidiuretic hormone secretion [Recovering/Resolving]
